FAERS Safety Report 6608438-9 (Version None)
Quarter: 2010Q1

REPORT INFORMATION
  Report Type: 
  Country: None (occurrence: None)
  Receive Date: 20100301
  Receipt Date: 20100219
  Transmission Date: 20100710
  Serious: Yes (Hospitalization)
  Sender: FDA-Public Use
  Company Number: FI-ELI_LILLY_AND_COMPANY-FI201002005361

PATIENT
  Age: 79 Year
  Sex: Male

DRUGS (1)
  1. ALIMTA [Suspect]
     Indication: LUNG NEOPLASM MALIGNANT
     Dosage: 500 MG/M2, CYCLES
     Dates: start: 20091201

REACTIONS (3)
  - C-REACTIVE PROTEIN INCREASED [None]
  - MALIGNANT NEOPLASM PROGRESSION [None]
  - PYREXIA [None]
